FAERS Safety Report 10529949 (Version 5)
Quarter: 2016Q1

REPORT INFORMATION
  Report Type: Report from Study
  Country: US (occurrence: US)
  Receive Date: 20141021
  Receipt Date: 20160317
  Transmission Date: 20160525
  Serious: No
  Sender: FDA-Public Use
  Company Number: US-AMGEN-USASP2014079514

PATIENT
  Age: 56 Year
  Sex: Male

DRUGS (1)
  1. ENBREL [Suspect]
     Active Substance: ETANERCEPT
     Indication: RHEUMATOID ARTHRITIS
     Dosage: 50 MG, QWK
     Route: 065
     Dates: start: 2008

REACTIONS (8)
  - Headache [Not Recovered/Not Resolved]
  - Device issue [Unknown]
  - Drug ineffective [Unknown]
  - Injection site pain [Unknown]
  - Pain [Not Recovered/Not Resolved]
  - Joint swelling [Unknown]
  - Joint effusion [Unknown]
  - Injection site mass [Unknown]

NARRATIVE: CASE EVENT DATE: 20141009
